FAERS Safety Report 4540562-7 (Version None)
Quarter: 2004Q4

REPORT INFORMATION
  Report Type: 
  Country: None (occurrence: None)
  Receive Date: 20041228
  Receipt Date: 20041228
  Transmission Date: 20050328
  Serious: Yes (Other)
  Sender: FDA-Public Use
  Company Number: None

PATIENT
  Age: 45 Year
  Sex: Male

DRUGS (1)
  1. AMITRIPTYLINE 25MG  VINTAGE/QUALITEST [Suspect]
     Dosage: 25MG  4 TABLETS HS  ORAL
     Route: 048
     Dates: start: 20041126, end: 20041217

REACTIONS (4)
  - AGITATION [None]
  - DRUG HYPERSENSITIVITY [None]
  - INSOMNIA [None]
  - PHARMACEUTICAL PRODUCT COMPLAINT [None]
